FAERS Safety Report 13207482 (Version 1)
Quarter: 2017Q1

REPORT INFORMATION
  Report Type: Spontaneous
  Country: US (occurrence: US)
  Receive Date: 20170209
  Receipt Date: 20170209
  Transmission Date: 20170428
  Serious: Yes (Hospitalization)
  Sender: FDA-Public Use
  Company Number: None

PATIENT
  Age: 73 Year
  Sex: Male
  Weight: 104.3 kg

DRUGS (1)
  1. CISPLATIN. [Suspect]
     Active Substance: CISPLATIN
     Dates: end: 20170104

REACTIONS (10)
  - Blood creatinine increased [None]
  - Nausea [None]
  - Asthenia [None]
  - Dizziness [None]
  - Hypomagnesaemia [None]
  - Presyncope [None]
  - Hypocalcaemia [None]
  - Dyspnoea [None]
  - Dehydration [None]
  - Hypokalaemia [None]

NARRATIVE: CASE EVENT DATE: 20170123
